FAERS Safety Report 5686924-6 (Version None)
Quarter: 2008Q1

REPORT INFORMATION
  Report Type: 
  Country: None (occurrence: None)
  Receive Date: 20080328
  Receipt Date: 20070509
  Transmission Date: 20080703
  Serious: No
  Sender: FDA-Public Use
  Company Number: US-BAYER-US-2007-016793

PATIENT
  Age: 42 Year
  Sex: Female
  Weight: 70 kg

DRUGS (3)
  1. MIRENA [Suspect]
     Route: 015
     Dates: start: 20020101
  2. ADVAIR DISKUS 100/50 [Concomitant]
  3. SINGULAIR [Concomitant]

REACTIONS (2)
  - COITAL BLEEDING [None]
  - MENSTRUATION IRREGULAR [None]
